FAERS Safety Report 26089430 (Version 1)
Quarter: 2025Q4

REPORT INFORMATION
  Report Type: Spontaneous
  Country: US (occurrence: US)
  Receive Date: 20251125
  Receipt Date: 20251125
  Transmission Date: 20260118
  Serious: No
  Sender: SANOFI AVENTIS
  Company Number: US-SA-2025SA352145

PATIENT
  Age: 73 Year
  Sex: Male

DRUGS (2)
  1. DUPIXENT [Suspect]
     Active Substance: DUPILUMAB
     Indication: Dermatitis atopic
     Dosage: 300 MG, QOW
     Route: 058
     Dates: start: 202504, end: 202507
  2. DUPIXENT [Suspect]
     Active Substance: DUPILUMAB
     Indication: Dermatitis allergic

REACTIONS (2)
  - Rash pruritic [Not Recovered/Not Resolved]
  - Intentional dose omission [Not Recovered/Not Resolved]

NARRATIVE: CASE EVENT DATE: 20250101
